FAERS Safety Report 7770897-6 (Version None)
Quarter: 2011Q3

REPORT INFORMATION
  Report Type: 
  Country: None (occurrence: None)
  Receive Date: 20110922
  Receipt Date: 20110228
  Transmission Date: 20111222
  Serious: Yes (Hospitalization)
  Sender: FDA-Public Use
  Company Number: US-ASTRAZENECA-2008UW00350

PATIENT
  Age: 17994 Day
  Sex: Female
  Weight: 99.8 kg

DRUGS (19)
  1. SEROQUEL [Suspect]
     Route: 048
     Dates: start: 20040703
  2. CIPROFLOXACIN [Concomitant]
     Dates: start: 20040802
  3. TRAZODONE HYDROCHLORIDE [Concomitant]
     Dates: start: 20040816
  4. GLIPIZIDE [Concomitant]
     Dates: start: 20041006
  5. OXYCODONE HCL AND ACETAMINOPHEN [Concomitant]
     Dates: start: 20041203
  6. METFORMIN [Concomitant]
     Dates: start: 20040728
  7. LORAZEPAM [Concomitant]
     Dates: start: 20040626
  8. LIPITOR [Concomitant]
     Dates: start: 20060101
  9. LASIX [Concomitant]
     Route: 048
     Dates: start: 20020101
  10. HYDROC/ APAP [Concomitant]
     Dosage: 5 MG/500
     Dates: start: 20041112
  11. LITHIUM CARBONATE [Concomitant]
     Indication: BIPOLAR DISORDER
     Route: 048
     Dates: start: 20020401
  12. SYNTHROID [Concomitant]
     Route: 048
     Dates: start: 20020401
  13. PROMETHAZINE [Concomitant]
     Dates: start: 20040728
  14. DEPAKOTE [Concomitant]
     Dates: start: 20040726
  15. AMBIEN [Concomitant]
     Dates: start: 20040823
  16. SEROQUEL [Suspect]
     Indication: BIPOLAR DISORDER
     Route: 048
     Dates: start: 20020401
  17. SEROQUEL [Suspect]
     Dosage: 200MG TO 1200MG
     Route: 048
     Dates: start: 20040901, end: 20071101
  18. SEROQUEL [Suspect]
     Route: 048
  19. IBUPROFEN [Concomitant]
     Dates: start: 20040730

REACTIONS (4)
  - DYSLIPIDAEMIA [None]
  - DIABETIC COMA [None]
  - BLOOD CHOLESTEROL INCREASED [None]
  - TYPE 2 DIABETES MELLITUS [None]
